FAERS Safety Report 13517711 (Version 1)
Quarter: 2017Q2

REPORT INFORMATION
  Report Type: Spontaneous
  Country: US (occurrence: US)
  Receive Date: 20170505
  Receipt Date: 20170505
  Transmission Date: 20170830
  Serious: No
  Sender: FDA-Public Use
  Company Number: US-PFIZER INC-2017198495

PATIENT
  Age: 68 Year
  Sex: Female
  Weight: 77 kg

DRUGS (4)
  1. AROMASIN [Suspect]
     Active Substance: EXEMESTANE
     Indication: BREAST CANCER
     Dosage: 25 MG, 1X/DAY
  2. NORVASC [Interacting]
     Active Substance: AMLODIPINE BESYLATE
     Indication: HYPERTENSION
     Dosage: 5 MG, 1X/DAY
     Route: 048
  3. PROTONIX /00661201/ [Concomitant]
     Active Substance: OMEPRAZOLE
     Indication: GASTROOESOPHAGEAL REFLUX DISEASE
     Dosage: 40 MG, 1X/DAY
     Route: 048
  4. ZOCOR [Concomitant]
     Active Substance: SIMVASTATIN
     Indication: BLOOD CHOLESTEROL ABNORMAL
     Dosage: 40 MG, 1X/DAY
     Route: 048

REACTIONS (8)
  - Burning sensation [Recovering/Resolving]
  - Joint swelling [Recovering/Resolving]
  - Asthenia [Recovering/Resolving]
  - Joint range of motion decreased [Recovering/Resolving]
  - Erythema [Recovering/Resolving]
  - Drug interaction [Recovering/Resolving]
  - Peripheral swelling [Recovering/Resolving]
  - Hot flush [Recovering/Resolving]
